FAERS Safety Report 7464237-X (Version None)
Quarter: 2011Q2

REPORT INFORMATION
  Report Type: 
  Country: None (occurrence: None)
  Receive Date: 20110506
  Receipt Date: 20110502
  Transmission Date: 20111010
  Serious: Yes (Life-Threatening)
  Sender: FDA-Public Use
  Company Number: IT-ASTRAZENECA-2011SE25166

PATIENT

DRUGS (1)
  1. IRESSA [Suspect]
     Route: 048
     Dates: start: 20110307, end: 20110502

REACTIONS (2)
  - CEREBRAL ISCHAEMIA [None]
  - EPILEPSY [None]
